FAERS Safety Report 8573785-0 (Version None)
Quarter: 2012Q3

REPORT INFORMATION
  Report Type: 
  Country: None (occurrence: None)
  Receive Date: 20120806
  Receipt Date: 20120730
  Transmission Date: 20120928
  Serious: Yes (Other)
  Sender: FDA-Public Use
  Company Number: BR-GLAXOSMITHKLINE-B0820606A

PATIENT
  Sex: Male
  Weight: 85 kg

DRUGS (3)
  1. BETAHISTINE [Concomitant]
     Indication: LABYRINTHITIS
     Dosage: 1TAB PER DAY
     Route: 048
  2. LEVOTHYROXINE SODIUM [Concomitant]
     Indication: HYPOTHYROIDISM
     Dosage: 88MCG PER DAY
     Route: 048
  3. PROPAFENONE HCL [Suspect]
     Indication: ARRHYTHMIA
     Dosage: 300MG TWICE PER DAY
     Route: 048
     Dates: start: 20040101, end: 20120601

REACTIONS (5)
  - PROSTATE CANCER [None]
  - MYOCARDIAL INFARCTION [None]
  - MIGRAINE [None]
  - HEADACHE [None]
  - MALAISE [None]
